FAERS Safety Report 5218370-3 (Version None)
Quarter: 2007Q1

REPORT INFORMATION
  Report Type: 
  Country: None (occurrence: None)
  Receive Date: 20070123
  Receipt Date: 20070123
  Transmission Date: 20070707
  Serious: No
  Sender: FDA-Public Use
  Company Number: None

PATIENT
  Sex: Male
  Weight: 83.4619 kg

DRUGS (15)
  1. ELSPAR [Suspect]
     Indication: T-CELL LYMPHOMA
     Dosage: 12500 UNITS DAILY IV
     Route: 042
     Dates: start: 20061103, end: 20061103
  2. ACETAMINOPHEN [Concomitant]
  3. CENTRUM [Concomitant]
  4. DEXAMETHASONE [Concomitant]
  5. DIPHENHYDRAMINE HCL [Concomitant]
  6. DOCUSATE [Concomitant]
  7. FLUCONAZOLE [Concomitant]
  8. FLUTICASONE PROPIONATE [Concomitant]
  9. GRANISETRON [Concomitant]
  10. METRONIDAZOLE [Concomitant]
  11. MORPHINE [Concomitant]
  12. PANTOPRAZOLE SODIUM [Concomitant]
  13. PROCHLORPERAZINE [Concomitant]
  14. VANCOMYCIN [Concomitant]
  15. ZOLPIDEM TARTRATE [Concomitant]

REACTIONS (3)
  - ERYTHEMA [None]
  - HYPERHIDROSIS [None]
  - INFUSION RELATED REACTION [None]
